FAERS Safety Report 10649596 (Version 1)
Quarter: 2014Q4

REPORT INFORMATION
  Report Type: Spontaneous
  Country: TR (occurrence: None)
  Receive Date: 20141210
  Receipt Date: 20141210
  Transmission Date: 20150529
  Serious: Yes (Hospitalization, Other)
  Sender: FDA-Public Use
  Company Number: TR-ZYDUS-005933

PATIENT
  Age: 41 Year
  Sex: Male

DRUGS (2)
  1. WARFARIN (WARFARIN) [Suspect]
     Active Substance: WARFARIN
  2. ASPIRIN (ASPIRIN) [Suspect]
     Active Substance: ASPIRIN

REACTIONS (2)
  - Retroperitoneal haematoma [None]
  - Neuropathy peripheral [None]
